FAERS Safety Report 9681311 (Version 4)
Quarter: 2013Q4

REPORT INFORMATION
  Report Type: Report from Study
  Country: CA (occurrence: CA)
  Receive Date: 20131111
  Receipt Date: 20131220
  Transmission Date: 20140711
  Serious: Yes (Hospitalization)
  Sender: FDA-Public Use
  Company Number: CA-EISAI INC-E7389-04149-CLI-CA

PATIENT
  Sex: Female
  Weight: 52 kg

DRUGS (5)
  1. E7389 (BOLD) [Suspect]
     Indication: BREAST CANCER METASTATIC
     Route: 041
     Dates: start: 20121206, end: 20130814
  2. PREDNISONE [Concomitant]
     Indication: INFECTION
     Route: 048
     Dates: start: 201301
  3. PANTOPRAZOLE [Concomitant]
     Indication: REFLUX GASTRITIS
     Route: 048
     Dates: start: 201301
  4. METOCLOPRAMIDE [Concomitant]
     Indication: NAUSEA
     Route: 058
     Dates: start: 201301
  5. VENLAFAXINE [Concomitant]
     Indication: DEPRESSION
     Route: 048
     Dates: start: 201301

REACTIONS (2)
  - Febrile neutropenia [Recovered/Resolved]
  - Delirium [Recovered/Resolved]
